FAERS Safety Report 7134460-2 (Version None)
Quarter: 2010Q4

REPORT INFORMATION
  Report Type: 
  Country: None (occurrence: None)
  Receive Date: 20101203
  Receipt Date: 20101129
  Transmission Date: 20110411
  Serious: Yes (Hospitalization, Other)
  Sender: FDA-Public Use
  Company Number: US-SANOFI-AVENTIS-2010SA042589

PATIENT
  Age: 35 Year
  Sex: Female
  Weight: 44 kg

DRUGS (14)
  1. SOLOSTAR [Suspect]
     Indication: TYPE 1 DIABETES MELLITUS
     Dates: end: 20100626
  2. SOLOSTAR [Suspect]
     Dates: end: 20100626
  3. SOLOSTAR [Suspect]
     Dates: start: 20100627, end: 20100708
  4. SOLOSTAR [Suspect]
     Dates: start: 20100709
  5. LANTUS [Suspect]
     Indication: TYPE 1 DIABETES MELLITUS
     Dosage: DOSE:14 UNIT(S)
     Route: 058
     Dates: start: 20020101, end: 20100626
  6. LANTUS [Suspect]
     Dosage: DOSE:14 UNIT(S)
     Route: 058
     Dates: start: 20020101, end: 20100626
  7. LANTUS [Suspect]
     Dosage: DOSE:14 UNIT(S)
     Route: 058
     Dates: start: 20100627, end: 20100708
  8. LANTUS [Suspect]
     Dosage: DOSE:14 UNIT(S)
     Route: 058
     Dates: start: 20100709
  9. NOVOLOG [Concomitant]
     Route: 042
     Dates: start: 20100701
  10. NOVOLOG [Concomitant]
     Dosage: WITH MEALS DOSE:6 UNIT(S)
     Route: 058
  11. NOVOLOG [Concomitant]
     Dosage: UNSURE HOW MANY MEALS PATIENT REC'D A DAY. DOSE:3 UNIT(S)
     Route: 058
     Dates: start: 20100701
  12. NOVOLOG [Concomitant]
     Dosage: UNSPECIFIED DOSE GIVE AS COVERAGE IN ADDITION TO 3 UNITS WITH MEALS
     Route: 058
     Dates: start: 20100701
  13. ACETAMINOPHEN [Concomitant]
     Dosage: EVERY 4 HOURS ; PRN
  14. ALBUTEROL [Concomitant]
     Dosage: EVERY 2 HOURS ;PRN DOSE:2 PUFF(S)

REACTIONS (7)
  - DEHYDRATION [None]
  - DIABETIC KETOACIDOSIS [None]
  - DRUG INEFFECTIVE [None]
  - HYPERGLYCAEMIA [None]
  - PAIN [None]
  - POLLAKIURIA [None]
  - POLYDIPSIA [None]
